FAERS Safety Report 25788067 (Version 1)
Quarter: 2025Q3

REPORT INFORMATION
  Report Type: Spontaneous
  Country: US (occurrence: US)
  Receive Date: 20250910
  Receipt Date: 20250910
  Transmission Date: 20251021
  Serious: No
  Sender: ELI LILLY AND COMPANY
  Company Number: US-ELI_LILLY_AND_COMPANY-US202509008210

PATIENT
  Age: 32 Year
  Sex: Male

DRUGS (4)
  1. HUMALOG KWIKPEN [Suspect]
     Active Substance: INSULIN LISPRO
     Indication: Product used for unknown indication
     Route: 065
  2. HUMALOG KWIKPEN [Suspect]
     Active Substance: INSULIN LISPRO
     Indication: Product used for unknown indication
     Route: 065
  3. HUMALOG KWIKPEN [Suspect]
     Active Substance: INSULIN LISPRO
     Route: 065
  4. HUMALOG KWIKPEN [Suspect]
     Active Substance: INSULIN LISPRO
     Route: 065

REACTIONS (3)
  - Wrong technique in product usage process [Unknown]
  - Malaise [Unknown]
  - Drug ineffective [Unknown]
